FAERS Safety Report 6596894-4 (Version None)
Quarter: 2010Q1

REPORT INFORMATION
  Report Type: 
  Country: None (occurrence: None)
  Receive Date: 20100222
  Receipt Date: 20100222
  Transmission Date: 20100710
  Serious: No
  Sender: FDA-Public Use
  Company Number: None

PATIENT
  Sex: Male
  Weight: 82.5547 kg

DRUGS (1)
  1. VESICARE [Suspect]

REACTIONS (8)
  - BACK PAIN [None]
  - DIZZINESS [None]
  - DYSURIA [None]
  - NAUSEA [None]
  - PRURITUS [None]
  - RENAL PAIN [None]
  - VERTIGO [None]
  - VISION BLURRED [None]
